FAERS Safety Report 9592888 (Version 1)
Quarter: 2013Q4

REPORT INFORMATION
  Report Type: Spontaneous
  Country: AE (occurrence: AE)
  Receive Date: 20131004
  Receipt Date: 20131004
  Transmission Date: 20140711
  Serious: Yes (Hospitalization, Other)
  Sender: FDA-Public Use
  Company Number: PHHY2013AE110092

PATIENT
  Age: 39 Year
  Sex: Female

DRUGS (1)
  1. ONBREZ [Suspect]
     Indication: CHRONIC OBSTRUCTIVE PULMONARY DISEASE
     Dosage: 150 UG, UNK
     Dates: start: 20130915, end: 20130917

REACTIONS (3)
  - Bundle branch block left [Recovered/Resolved]
  - Aortic valve incompetence [Recovered/Resolved]
  - Tachycardia [Recovered/Resolved]
